FAERS Safety Report 9041108 (Version 1)
Quarter: 2013Q1

REPORT INFORMATION
  Report Type: Spontaneous
  Country: US (occurrence: None)
  Receive Date: 20130124
  Receipt Date: 20130124
  Transmission Date: 20140127
  Serious: No
  Sender: FDA-Public Use
  Company Number: None

PATIENT
  Age: 91 Year
  Sex: Female
  Weight: 49.9 kg

DRUGS (1)
  1. TOBRAMYCIN - DEXAMETH OPHTH [Suspect]
     Indication: EYE IRRITATION
     Dosage: 1 DROP  TWICE DAILY

REACTIONS (1)
  - Rash [None]
